FAERS Safety Report 5961613-9 (Version None)
Quarter: 2008Q4

REPORT INFORMATION
  Report Type: 
  Country: None (occurrence: None)
  Receive Date: 20081121
  Receipt Date: 20081113
  Transmission Date: 20090506
  Serious: Yes (Other)
  Sender: FDA-Public Use
  Company Number: JP-AVENTIS-200813519JP

PATIENT
  Age: 1 Hour
  Sex: Male
  Weight: 3.28 kg

DRUGS (2)
  1. INSULIN GLARGINE [Suspect]
     Route: 064
  2. INSULIN LISPRO [Suspect]
     Route: 064

REACTIONS (5)
  - BLOOD BILIRUBIN INCREASED [None]
  - DRUG EXPOSURE DURING PREGNANCY [None]
  - HYPOGLYCAEMIA NEONATAL [None]
  - JAUNDICE NEONATAL [None]
  - POLYCYTHAEMIA [None]
